FAERS Safety Report 19114997 (Version 1)
Quarter: 2021Q2

REPORT INFORMATION
  Report Type: Other
  Country: FR (occurrence: FR)
  Receive Date: 20210408
  Receipt Date: 20210408
  Transmission Date: 20210717
  Serious: Yes (Hospitalization, Other)
  Sender: FDA-Public Use
  Company Number: FR-VALIDUS PHARMACEUTICALS LLC-FR-2021VAL000566

PATIENT
  Age: 13 Year
  Sex: Male
  Weight: 47.7 kg

DRUGS (3)
  1. CEFOTAXIME SODIUM [Suspect]
     Active Substance: CEFOTAXIME SODIUM
     Indication: PERITONSILLAR ABSCESS
     Dosage: 3 G, QD
     Route: 042
     Dates: start: 20190317, end: 20190319
  2. AUGMENTIN [Suspect]
     Active Substance: AMOXICILLIN\CLAVULANATE POTASSIUM
     Indication: PERITONSILLAR ABSCESS
     Dosage: UNK
     Route: 041
     Dates: start: 20190319, end: 20190319
  3. METRONIDAZOLE. [Suspect]
     Active Substance: METRONIDAZOLE
     Indication: PERITONSILLAR ABSCESS
     Dosage: 1500 MG, QD
     Route: 042
     Dates: start: 20190317, end: 20190319

REACTIONS (2)
  - Anaphylactoid reaction [Recovered/Resolved]
  - Hypersensitivity [Recovered/Resolved]

NARRATIVE: CASE EVENT DATE: 20190319
